FAERS Safety Report 6085821-4 (Version None)
Quarter: 2009Q1

REPORT INFORMATION
  Report Type: 
  Country: None (occurrence: None)
  Receive Date: 20090220
  Receipt Date: 20090217
  Transmission Date: 20090719
  Serious: Yes (Life-Threatening, Disabling, Other)
  Sender: FDA-Public Use
  Company Number: A0764544A

PATIENT
  Age: 51 Year
  Sex: Female
  Weight: 45.5 kg

DRUGS (6)
  1. IMITREX [Suspect]
     Indication: MIGRAINE
     Dosage: 50MG AS REQUIRED
     Route: 048
     Dates: start: 19920101
  2. EFFEXOR XR [Suspect]
     Indication: DEPRESSION
     Dosage: 75MG THREE TIMES PER DAY
     Route: 048
     Dates: start: 19980101
  3. EFFEXOR [Concomitant]
  4. PLASMA [Concomitant]
     Route: 042
  5. VALTREX [Concomitant]
  6. TRAZODONE HCL [Concomitant]

REACTIONS (9)
  - BALANCE DISORDER [None]
  - BEDRIDDEN [None]
  - DIZZINESS [None]
  - DRUG INTERACTION [None]
  - FALL [None]
  - GAIT DISTURBANCE [None]
  - NAUSEA [None]
  - VERTIGO [None]
  - VERTIGO POSITIONAL [None]
